FAERS Safety Report 5050784-7 (Version None)
Quarter: 2006Q3

REPORT INFORMATION
  Report Type: 
  Country: None (occurrence: None)
  Receive Date: 20060707
  Receipt Date: 20060629
  Transmission Date: 20061208
  Serious: Yes (Hospitalization)
  Sender: FDA-Public Use
  Company Number: FRWYE207207JUL03

PATIENT
  Age: 64 Year
  Sex: Male

DRUGS (3)
  1. RAPAMUNE [Suspect]
     Indication: PROPHYLAXIS AGAINST TRANSPLANT REJECTION
     Dosage: 15 MG DAILY THEN 12 MG DAILY
     Route: 048
     Dates: start: 20030404, end: 20030604
  2. PREDNISONE TAB [Concomitant]
  3. MYCOPHENOLATE MOFETIL (MYCOPHENOLATE MOFETIL, 0) [Suspect]
     Indication: PROPHYLAXIS AGAINST TRANSPLANT REJECTION
     Dosage: 1500 MG 1X PER 1 DAY
     Route: 048
     Dates: start: 20030502, end: 20030603

REACTIONS (2)
  - REMOVAL OF RENAL TRANSPLANT [None]
  - RENAL FAILURE [None]
